FAERS Safety Report 10176164 (Version 1)
Quarter: 2014Q2

REPORT INFORMATION
  Report Type: Spontaneous
  Country: US (occurrence: US)
  Receive Date: 20140516
  Receipt Date: 20140516
  Transmission Date: 20141212
  Serious: Yes (Death, Hospitalization)
  Sender: FDA-Public Use
  Company Number: US-ROCHE-1401511

PATIENT
  Age: 52 Year
  Sex: Male

DRUGS (2)
  1. ZELBORAF [Suspect]
     Indication: PLASMA CELL MYELOMA
     Route: 048
     Dates: start: 20131012, end: 20140510
  2. TESTOSTERONE CYPIONATE [Concomitant]
     Indication: BLOOD TESTOSTERONE DECREASED
     Route: 030
     Dates: start: 20131024

REACTIONS (2)
  - Pneumonia [Fatal]
  - Cardiac disorder [Not Recovered/Not Resolved]
